FAERS Safety Report 4527430-1 (Version None)
Quarter: 2004Q4

REPORT INFORMATION
  Report Type: 
  Country: None (occurrence: None)
  Receive Date: 20041130
  Receipt Date: 20040909
  Transmission Date: 20050328
  Serious: No
  Sender: FDA-Public Use
  Company Number: WAES 0409USA00757

PATIENT
  Age: 54 Year
  Sex: Male

DRUGS (3)
  1. ZETIA [Suspect]
     Indication: HYPERCHOLESTEROLAEMIA
     Dosage: 10 MG/DAILY/PO
     Route: 048
     Dates: start: 20040722, end: 20040907
  2. ZETIA [Suspect]
     Indication: HYPERCHOLESTEROLAEMIA
     Dosage: 10 MG/DAILY/PO
     Route: 048
     Dates: start: 20021126
  3. [THERAPY UNSPECIFIED] [Concomitant]

REACTIONS (2)
  - DYSPEPSIA [None]
  - MEDICATION ERROR [None]
